FAERS Safety Report 23298133 (Version 1)
Quarter: 2023Q4

REPORT INFORMATION
  Report Type: Spontaneous
  Country: NO (occurrence: NO)
  Receive Date: 20231214
  Receipt Date: 20231214
  Transmission Date: 20240110
  Serious: Yes (Life-Threatening)
  Sender: FDA-Public Use
  Company Number: None

PATIENT
  Age: 30 Year
  Sex: Female

DRUGS (3)
  1. ETOPOSIDE [Suspect]
     Active Substance: ETOPOSIDE
     Indication: Neoplasm malignant
     Dosage: FIRST DAY OF THE SECOND EP-COURSE.?DOSAGE UNKNOWN, BUT THE INFUSION WAS STOPPED AFTER 45 ML WAS ADMI
     Dates: start: 20231122, end: 20231122
  2. AKYNZEO [Concomitant]
     Indication: Premedication
     Dosage: DOSAGE UNKNOWN
     Dates: start: 20231122, end: 20231122
  3. DEXAMETHASONE [Concomitant]
     Active Substance: DEXAMETHASONE
     Indication: Premedication
     Dates: start: 20231122, end: 20231122

REACTIONS (1)
  - Anaphylactic reaction [Unknown]

NARRATIVE: CASE EVENT DATE: 20231122
